FAERS Safety Report 10990682 (Version 2)
Quarter: 2015Q2

REPORT INFORMATION
  Report Type: Report from Study
  Country: US (occurrence: US)
  Receive Date: 20150406
  Receipt Date: 20150416
  Transmission Date: 20150821
  Serious: Yes (Hospitalization)
  Sender: FDA-Public Use
  Company Number: US-GILEAD-2015-0143537

PATIENT
  Age: 79 Year
  Sex: Female

DRUGS (1)
  1. RANOLAZINE [Suspect]
     Active Substance: RANOLAZINE
     Indication: ANGINA PECTORIS
     Dosage: 500 MG, UNK
     Route: 048
     Dates: end: 20150410

REACTIONS (5)
  - Influenza [Unknown]
  - Vomiting [Unknown]
  - Malaise [Unknown]
  - Gastritis viral [Recovering/Resolving]
  - Diarrhoea [Unknown]
